FAERS Safety Report 25140511 (Version 8)
Quarter: 2025Q4

REPORT INFORMATION
  Report Type: Spontaneous
  Country: US (occurrence: US)
  Receive Date: 20250331
  Receipt Date: 20251002
  Transmission Date: 20260117
  Serious: Yes (Death, Hospitalization, Other)
  Sender: NOVARTIS
  Company Number: US-SANDOZ-SDZ2025US019342

PATIENT
  Age: 77 Year
  Sex: Male
  Weight: 64.9 kg

DRUGS (51)
  1. KYMRIAH [Suspect]
     Active Substance: TISAGENLECLEUCEL
     Indication: Diffuse large B-cell lymphoma
     Dosage: UNK, ONCE/SINGLE (440,000,000) DOSE LAST TAKEN PRIOR TO AE: 18-MAR-2025)
     Route: 042
     Dates: start: 20250318, end: 20250318
  2. ACETAMINOPHEN [Suspect]
     Active Substance: ACETAMINOPHEN
     Indication: Pyrexia
     Dosage: UNK (10MG/ML IN 1,000 MG 400 ML/HR INTRAVENOUS ONCE)
     Route: 042
  3. ACETAMINOPHEN [Suspect]
     Active Substance: ACETAMINOPHEN
     Indication: Cytokine release syndrome
  4. TISAGENLECLEUCEL [Concomitant]
     Active Substance: TISAGENLECLEUCEL
     Indication: Diffuse large B-cell lymphoma
     Dosage: UNK (440,000,000)
     Route: 042
     Dates: start: 20250318, end: 20250318
  5. ACYCLOVIR [Concomitant]
     Active Substance: ACYCLOVIR
     Indication: Product used for unknown indication
     Dosage: 800 MG (400 MG BID)
     Route: 048
     Dates: start: 20241224
  6. ALBUTEROL SULFATE [Concomitant]
     Active Substance: ALBUTEROL SULFATE
     Indication: Product used for unknown indication
     Dosage: UNK (108 (90 BASE) MCG/ACT INHALE 2 PUFFS Q 4 HR)
     Route: 055
     Dates: start: 20241221
  7. ALBUTEROL SULFATE [Concomitant]
     Active Substance: ALBUTEROL SULFATE
     Dosage: 2.5 ML (2.5 ML 2 PUFFS Q 6 HR)
     Route: 055
     Dates: start: 20250320, end: 20250321
  8. ALBUTEROL SULFATE [Concomitant]
     Active Substance: ALBUTEROL SULFATE
     Dosage: 2.5 ML
     Route: 065
  9. ASPIRIN [Concomitant]
     Active Substance: ASPIRIN
     Indication: Product used for unknown indication
     Dosage: 81 MG, QD
     Route: 048
     Dates: start: 20241222
  10. ASPIRIN [Concomitant]
     Active Substance: ASPIRIN
     Dosage: 81 MG, QD
     Route: 048
     Dates: start: 20250320
  11. ATORVASTATIN [Concomitant]
     Active Substance: ATORVASTATIN
     Indication: Product used for unknown indication
     Dosage: 40 MG, QD
     Route: 048
     Dates: start: 20241221
  12. ATORVASTATIN [Concomitant]
     Active Substance: ATORVASTATIN
     Dosage: 40 MG, QD
     Route: 048
     Dates: start: 20250320
  13. BISACODYL [Concomitant]
     Active Substance: BISACODYL
     Indication: Product used for unknown indication
     Dosage: 5 MG (5 MG DAILY ORALLY DAILY PRN)
     Route: 048
     Dates: start: 20241213
  14. CELECOXIB [Concomitant]
     Active Substance: CELECOXIB
     Indication: Product used for unknown indication
     Dosage: 200 MG (200 MG ORALLY DAILY PRN)
     Route: 048
     Dates: start: 20240229
  15. CEPHALEXIN [Concomitant]
     Active Substance: CEPHALEXIN
     Indication: Product used for unknown indication
     Dosage: 4 G (4 G 4 CAPSULES ORALLY PRIOR TO DENTAL PROCEDURE)
     Route: 048
     Dates: start: 20250115
  16. CHOLECALCIFEROL [Concomitant]
     Active Substance: CHOLECALCIFEROL
     Indication: Product used for unknown indication
     Dosage: UNK (2,000 UNITS ORALLY DAILY)
     Route: 048
     Dates: start: 20250125
  17. FLUTICASONE PROPIONATE [Concomitant]
     Active Substance: FLUTICASONE PROPIONATE
     Indication: Product used for unknown indication
     Dosage: UNK (~50 MCG/ACT 1 SPRAY IN BOTH NOSTRILS PRN)
     Route: 045
     Dates: start: 20240122
  18. FLUTICASONE FUROATE\UMECLIDINIUM BROMIDE\VILANTEROL TRIFENATATE [Concomitant]
     Active Substance: FLUTICASONE FUROATE\UMECLIDINIUM BROMIDE\VILANTEROL TRIFENATATE
     Indication: Product used for unknown indication
     Dosage: UNK (100-62.5-25 MCG/ACT INHALE 1 PUFF DAILY)
     Route: 055
  19. FLUTICASONE FUROATE\UMECLIDINIUM BROMIDE\VILANTEROL TRIFENATATE [Concomitant]
     Active Substance: FLUTICASONE FUROATE\UMECLIDINIUM BROMIDE\VILANTEROL TRIFENATATE
     Dosage: 100-62.5-25 MCG/ACT INHALE 1 PUFF DAILY
     Route: 055
  20. LEVOTHYROXINE SODIUM [Concomitant]
     Active Substance: LEVOTHYROXINE SODIUM
     Indication: Product used for unknown indication
     Dosage: 50 UG (50 MCG DAILY ORALLY BEFORE BREAKFAST)
     Route: 048
     Dates: start: 20240225
  21. LEVOTHYROXINE SODIUM [Concomitant]
     Active Substance: LEVOTHYROXINE SODIUM
     Dosage: 50 UG, QD
     Route: 048
     Dates: start: 20250320
  22. MELATONIN [Concomitant]
     Active Substance: MELATONIN
     Indication: Product used for unknown indication
     Dosage: 10 MG (10 MG ORALLY DAILY PRN)
     Route: 048
  23. MELATONIN [Concomitant]
     Active Substance: MELATONIN
     Dosage: 6 MG (10 MG ORALLY DAILY PRN  )
     Route: 048
     Dates: start: 20250320
  24. OMEPRAZOLE [Concomitant]
     Active Substance: OMEPRAZOLE
     Indication: Product used for unknown indication
     Dosage: 20 MG, QD
     Route: 048
     Dates: start: 20250103
  25. OXYMETAZOLINE HYDROCHLORIDE [Concomitant]
     Active Substance: OXYMETAZOLINE HYDROCHLORIDE
     Indication: Product used for unknown indication
     Dosage: 0.1 % (~0.05% 1 SPRAY BOTH NOSTRILS Q 2 DAYS)
     Route: 045
     Dates: start: 20241210
  26. PIRTOBRUTINIB [Concomitant]
     Active Substance: PIRTOBRUTINIB
     Indication: Product used for unknown indication
     Dosage: 200 MG, QD
     Route: 048
  27. SALINE [Concomitant]
     Active Substance: SODIUM CHLORIDE
     Indication: Product used for unknown indication
     Dosage: 0.65 % (0.65% 2 SPRAYS BOTH NOSTRILS Q 4 HR PRN)
     Route: 045
     Dates: start: 20241210
  28. SULFAMETHOXAZOLE\TRIMETHOPRIM [Concomitant]
     Active Substance: SULFAMETHOXAZOLE\TRIMETHOPRIM
     Indication: Product used for unknown indication
     Dosage: UNK (800-160 MG ORALLY 1 TABLET 3X PER WEEK ON MONDAY, WEDNESDAY, FRIDAY)
     Route: 048
     Dates: start: 20241224
  29. ZOLPIDEM TARTRATE [Concomitant]
     Active Substance: ZOLPIDEM TARTRATE
     Indication: Product used for unknown indication
     Dosage: 10 MG (10 MG ORALLY DAILY QRS PRN  )
     Route: 048
     Dates: start: 20220126
  30. OXYGEN [Concomitant]
     Active Substance: OXYGEN
     Indication: Product used for unknown indication
     Dosage: UNK (4-6 L, NASAL CANULA)
     Route: 045
     Dates: start: 20250319
  31. MAGNESIUM SULFATE [Concomitant]
     Active Substance: MAGNESIUM SULFATE
     Indication: Product used for unknown indication
     Dosage: 2 G
     Route: 042
  32. MAGNESIUM SULFATE [Concomitant]
     Active Substance: MAGNESIUM SULFATE
     Indication: Sinus tachycardia
  33. LACTATED RINGERS SOLUTION [Concomitant]
     Active Substance: CALCIUM CHLORIDE\POTASSIUM CHLORIDE\SODIUM CHLORIDE\SODIUM LACTATE
     Indication: Product used for unknown indication
     Dosage: UNK (1,000 ML 125 ML/HR  )
     Route: 042
     Dates: start: 20250319, end: 20250321
  34. LACTATED RINGERS SOLUTION [Concomitant]
     Active Substance: CALCIUM CHLORIDE\POTASSIUM CHLORIDE\SODIUM CHLORIDE\SODIUM LACTATE
     Dosage: 2000 ML
     Route: 042
     Dates: start: 20250321, end: 20250321
  35. FUROSEMIDE [Concomitant]
     Active Substance: FUROSEMIDE
     Indication: Product used for unknown indication
     Dosage: 40 MG
     Route: 042
     Dates: start: 20250321, end: 20250321
  36. IOPAMIDOL [Concomitant]
     Active Substance: IOPAMIDOL
     Indication: Product used for unknown indication
     Dosage: UNK (76% INJECTION IN 100 ML INTRAVENOUS ONCE)
     Route: 042
     Dates: start: 20250321, end: 20250321
  37. HYDROCORTISONE [Concomitant]
     Active Substance: HYDROCORTISONE
     Indication: Product used for unknown indication
     Dosage: 50 MG
     Route: 042
     Dates: start: 20250331
  38. FENTANYL [Concomitant]
     Active Substance: FENTANYL
     Indication: Product used for unknown indication
     Dosage: UNK(10 MCG/ML) 12.5-400 MCG  )
     Route: 042
  39. FENTANYL [Concomitant]
     Active Substance: FENTANYL
     Dosage: UNK (1.25-40 ML/HR  )
     Route: 042
     Dates: start: 20250322
  40. PHENYLEPHRINE [Concomitant]
     Active Substance: PHENYLEPHRINE
     Indication: Product used for unknown indication
     Dosage: UNK (10-400 MCG/MIN CONTINUOUS)
     Route: 042
     Dates: start: 20250321
  41. Bm enoxaparin [Concomitant]
     Indication: Product used for unknown indication
     Dosage: 40 MG (40 MG/0.4 ML INJECTION 40 MG SUBCUTANEOUS DAILY)
     Route: 058
     Dates: start: 20250320, end: 20250321
  42. LACTULOSE [Concomitant]
     Active Substance: LACTULOSE
     Indication: Product used for unknown indication
     Dosage: UNK (10 GM/15ML )
     Route: 048
  43. LACTULOSE [Concomitant]
     Active Substance: LACTULOSE
     Dosage: 10 G, Q6H
     Route: 048
     Dates: start: 20250320, end: 20250321
  44. LANSOPRAZOLE [Concomitant]
     Active Substance: LANSOPRAZOLE
     Indication: Product used for unknown indication
     Dosage: 30 MG (30 MG DAILY BEFORE BREAKFAST)
     Route: 065
     Dates: start: 20250320, end: 20250321
  45. LIDOCAINE [Concomitant]
     Active Substance: LIDOCAINE
     Indication: Product used for unknown indication
     Dosage: UNK (5% PATCH 2 PATCH TRANSDERMAL DAILY)
     Route: 062
     Dates: start: 20250320, end: 20250321
  46. IPRATROPIUM [Concomitant]
     Active Substance: IPRATROPIUM
     Indication: Product used for unknown indication
     Dosage: 0.02 %, (NEBULIZER SOLUTION 2.5 ML Q4 HR)
     Route: 055
     Dates: start: 20250321
  47. FENTANYL CITRATE [Concomitant]
     Active Substance: FENTANYL CITRATE
     Indication: Product used for unknown indication
     Dosage: UNK, (10 MCG/ML) 12.5-400 MCG
     Route: 065
  48. FENTANYL CITRATE [Concomitant]
     Active Substance: FENTANYL CITRATE
     Dosage: UNK, (1.25-40 ML/HR )
     Route: 065
     Dates: start: 20250322, end: 20250322
  49. METOPROLOL [Concomitant]
     Active Substance: METOPROLOL
     Indication: Product used for unknown indication
     Dosage: UNK
     Route: 065
  50. TRELEGY ELLIPTA [Concomitant]
     Active Substance: FLUTICASONE FUROATE\UMECLIDINIUM BROMIDE\VILANTEROL TRIFENATATE
     Indication: Product used for unknown indication
     Dosage: UNK
     Route: 065
  51. Amazole [Concomitant]
     Indication: Product used for unknown indication
     Dosage: UNK
     Route: 065

REACTIONS (7)
  - Cytokine release syndrome [Fatal]
  - Sepsis [Fatal]
  - Pyrexia [Fatal]
  - Acute respiratory failure [Fatal]
  - Pneumonia viral [Fatal]
  - Cardiogenic shock [Fatal]
  - Pneumonia bacterial [Fatal]

NARRATIVE: CASE EVENT DATE: 20250319
